FAERS Safety Report 25041038 (Version 1)
Quarter: 2025Q1

REPORT INFORMATION
  Report Type: Report from Study
  Country: US (occurrence: US)
  Receive Date: 20250305
  Receipt Date: 20250305
  Transmission Date: 20250408
  Serious: Yes (Other)
  Sender: NOVARTIS
  Company Number: US-002147023-NVSC2025US035618

PATIENT
  Age: 38 Year
  Sex: Female

DRUGS (1)
  1. KESIMPTA [Suspect]
     Active Substance: OFATUMUMAB
     Indication: Product used for unknown indication
     Dosage: 20 MG, QMO
     Route: 065
     Dates: start: 20230612

REACTIONS (5)
  - Multiple sclerosis relapse [Unknown]
  - Band sensation [Unknown]
  - Memory impairment [Unknown]
  - Nervousness [Unknown]
  - Brain fog [Unknown]

NARRATIVE: CASE EVENT DATE: 20250214
